FAERS Safety Report 21875046 (Version 5)
Quarter: 2025Q4

REPORT INFORMATION
  Report Type: Report from Study
  Country: EU (occurrence: EU)
  Receive Date: 20230117
  Receipt Date: 20251225
  Transmission Date: 20260118
  Serious: Yes (Death, Life-Threatening, Hospitalization, Other)
  Sender: ABBVIE
  Company Number: EU-ABBVIE-4272479

PATIENT
  Age: 61 Year
  Sex: Male
  Weight: 90 kg

DRUGS (5)
  1. VENETOCLAX [Suspect]
     Active Substance: VENETOCLAX
     Indication: Chronic lymphocytic leukaemia
     Route: 048
     Dates: start: 20211020, end: 20221110
  2. OBINUTUZUMAB [Suspect]
     Active Substance: OBINUTUZUMAB
     Indication: Chronic lymphocytic leukaemia
     Route: 042
     Dates: start: 20210928, end: 20220216
  3. ZOVIRAX [Concomitant]
     Active Substance: ACYCLOVIR
     Indication: Varicella immunisation
     Route: 048
     Dates: start: 20210928
  4. ALLOPURINOL [Concomitant]
     Active Substance: ALLOPURINOL
     Indication: Prophylaxis
     Route: 048
     Dates: start: 20210928
  5. SULFAMETHOXAZOLE\TRIMETHOPRIM [Concomitant]
     Active Substance: SULFAMETHOXAZOLE\TRIMETHOPRIM
     Indication: Prophylaxis
     Dosage: TIME INTERVAL: 0.33333333 DAYS
     Route: 048
     Dates: start: 20210928

REACTIONS (5)
  - Respiratory failure [Fatal]
  - Pneumocystis jirovecii infection [Unknown]
  - Dyspnoea [Unknown]
  - Pyrexia [Unknown]
  - COVID-19 [Fatal]

NARRATIVE: CASE EVENT DATE: 20230114
